FAERS Safety Report 8176520-3 (Version None)
Quarter: 2012Q1

REPORT INFORMATION
  Report Type: 
  Country: None (occurrence: None)
  Receive Date: 20120301
  Receipt Date: 20120227
  Transmission Date: 20120608
  Serious: Yes (Hospitalization, Other)
  Sender: FDA-Public Use
  Company Number: GB-PFIZER INC-2012051898

PATIENT
  Age: 81 Year
  Sex: Female

DRUGS (9)
  1. GABAPENTIN [Suspect]
     Indication: PAIN
     Dosage: UNK
  2. LANSOPRAZOLE [Concomitant]
  3. ACYCLOVIR [Suspect]
     Dosage: UNK
     Route: 042
  4. IMODIUM [Concomitant]
  5. CITALOPRAM [Concomitant]
  6. ACYCLOVIR [Suspect]
     Indication: HERPES ZOSTER
     Dosage: 800MG TABLETS 5 DOSE FORMS DAILY
  7. MIRTAZAPINE [Concomitant]
  8. ALENDRONIC ACID [Concomitant]
  9. CALCIUM [Concomitant]

REACTIONS (5)
  - CEREBROVASCULAR ACCIDENT [None]
  - HALLUCINATION [None]
  - NIGHTMARE [None]
  - EPISTAXIS [None]
  - APHASIA [None]
